FAERS Safety Report 10548046 (Version 4)
Quarter: 2016Q4

REPORT INFORMATION
  Report Type: Report from Study
  Country: HU (occurrence: HU)
  Receive Date: 20141028
  Receipt Date: 20161026
  Transmission Date: 20170206
  Serious: Yes (Hospitalization, Other)
  Sender: FDA-Public Use
  Company Number: PHHO2014HU014137

PATIENT
  Age: 58 Year
  Sex: Male
  Weight: 57 kg

DRUGS (5)
  1. FENTANYL. [Concomitant]
     Active Substance: FENTANYL
     Dosage: 200 UG, UNK
     Route: 062
     Dates: start: 20141016
  2. CATAFLAM [Suspect]
     Active Substance: DICLOFENAC POTASSIUM
     Indication: PAIN
     Dosage: 50 MG, TID
     Route: 048
     Dates: start: 20141008, end: 20141015
  3. FENTANYL. [Concomitant]
     Active Substance: FENTANYL
     Indication: CANCER PAIN
     Dosage: 125 UG, UNK
     Route: 062
     Dates: start: 20110515, end: 20141015
  4. PACLITAXEL. [Suspect]
     Active Substance: PACLITAXEL
     Indication: SQUAMOUS CELL CARCINOMA OF HEAD AND NECK
     Dosage: 65 MG, UNK
     Route: 048
     Dates: start: 20140528, end: 20140924
  5. CATAFLAM [Suspect]
     Active Substance: DICLOFENAC POTASSIUM
     Dosage: 100 MG, UNK
     Route: 065
     Dates: end: 20141015

REACTIONS (2)
  - Abdominal pain [Recovered/Resolved]
  - Cancer pain [Recovered/Resolved]

NARRATIVE: CASE EVENT DATE: 20141016
